FAERS Safety Report 7967013-4 (Version None)
Quarter: 2011Q4

REPORT INFORMATION
  Report Type: 
  Country: None (occurrence: None)
  Receive Date: 20111209
  Receipt Date: 20111128
  Transmission Date: 20120403
  Serious: Yes (Hospitalization)
  Sender: FDA-Public Use
  Company Number: GB-JNJFOC-20111111915

PATIENT
  Age: 67 Year
  Sex: Male
  Weight: 124 kg

DRUGS (2)
  1. ABIRATERONE ACETATE [Suspect]
     Indication: PROSTATE CANCER METASTATIC
     Route: 048
     Dates: start: 20110928
  2. TEICOPLANIN [Suspect]
     Indication: INFECTION
     Route: 042
     Dates: start: 20111110

REACTIONS (1)
  - THROMBOCYTOPENIA [None]
